FAERS Safety Report 9367743 (Version 1)
Quarter: 2013Q2

REPORT INFORMATION
  Report Type: Spontaneous
  Country: US (occurrence: US)
  Receive Date: 20130625
  Receipt Date: 20130625
  Transmission Date: 20140414
  Serious: Yes (Other)
  Sender: FDA-Public Use
  Company Number: US-ASTELLAS-2012US007788

PATIENT
  Age: 85 Year
  Sex: Female
  Weight: 79 kg

DRUGS (3)
  1. VESICARE [Suspect]
     Indication: MIXED INCONTINENCE
     Dosage: 10 MG, UID/QD
     Route: 048
     Dates: start: 20120310, end: 20120725
  2. ALLOPURINOL [Concomitant]
     Indication: BLOOD URIC ACID ABNORMAL
     Dosage: 100 MG, BID
     Route: 048
  3. METOPROLOL TARTRATE [Concomitant]
     Indication: HYPERTENSION
     Dosage: 100 MG, BID
     Route: 048

REACTIONS (2)
  - Lip swelling [Recovered/Resolved]
  - Swollen tongue [Unknown]
